FAERS Safety Report 10727446 (Version 1)
Quarter: 2015Q1

REPORT INFORMATION
  Report Type: Spontaneous
  Country: US (occurrence: US)
  Receive Date: 20150121
  Receipt Date: 20150121
  Transmission Date: 20150721
  Serious: Yes (Hospitalization, Other)
  Sender: FDA-Public Use
  Company Number: US-APOTEX-2015AP005238

PATIENT
  Age: 49 Year
  Sex: Male

DRUGS (2)
  1. METFORMIN HYDROCHLORIDE. [Suspect]
     Active Substance: METFORMIN HYDROCHLORIDE
     Indication: DIABETES MELLITUS
     Dosage: UNK
     Route: 065
  2. HALOPERIDOL. [Concomitant]
     Active Substance: HALOPERIDOL
     Indication: SCHIZOPHRENIA
     Route: 065

REACTIONS (13)
  - Acid base balance abnormal [Unknown]
  - Overdose [Recovering/Resolving]
  - Unresponsive to stimuli [Recovering/Resolving]
  - Hypothermia [Unknown]
  - Blood sodium decreased [None]
  - Blood urea increased [None]
  - Blood creatine phosphokinase increased [None]
  - Anuria [Unknown]
  - Blood creatinine increased [None]
  - Blood glucose decreased [None]
  - Toxicity to various agents [None]
  - Haemodynamic instability [Unknown]
  - Haemodialysis [None]
